FAERS Safety Report 13501276 (Version 2)
Quarter: 2017Q4

REPORT INFORMATION
  Report Type: Spontaneous
  Country: US (occurrence: US)
  Receive Date: 20170501
  Receipt Date: 20171027
  Transmission Date: 20180320
  Serious: No
  Sender: FDA-Public Use
  Company Number: US-ROCHE-1714953

PATIENT
  Age: 49 Year
  Sex: Male
  Weight: 92.62 kg

DRUGS (3)
  1. ESBRIET [Suspect]
     Active Substance: PIRFENIDONE
     Route: 048
     Dates: start: 20160127, end: 20160831
  2. ESOMEPRAZOLE MAGNESIUM. [Concomitant]
     Active Substance: ESOMEPRAZOLE MAGNESIUM
     Route: 048
     Dates: start: 20160101
  3. ESBRIET [Suspect]
     Active Substance: PIRFENIDONE
     Indication: IDIOPATHIC PULMONARY FIBROSIS
     Dosage: 3 CAPSULES 3 TIMES PER DAY.
     Route: 048
     Dates: start: 20160101

REACTIONS (5)
  - Dyspepsia [Unknown]
  - Hypertension [Recovering/Resolving]
  - Stomach mass [Unknown]
  - Fatigue [Recovered/Resolved with Sequelae]
  - Initial insomnia [Recovered/Resolved with Sequelae]

NARRATIVE: CASE EVENT DATE: 201601
